FAERS Safety Report 9702594 (Version 1)
Quarter: 2013Q4

REPORT INFORMATION
  Report Type: Report from Study
  Country: US (occurrence: US)
  Receive Date: 20131121
  Receipt Date: 20131121
  Transmission Date: 20140711
  Serious: Yes (Other)
  Sender: FDA-Public Use
  Company Number: US-US-EMD SERONO, INC.-7250678

PATIENT
  Age: 56 Year
  Sex: Female

DRUGS (1)
  1. REBIF [Suspect]
     Indication: MULTIPLE SCLEROSIS
     Route: 058
     Dates: start: 20130523, end: 20131108

REACTIONS (4)
  - Sarcoidosis [Unknown]
  - Nephrolithiasis [Unknown]
  - Central nervous system lesion [Unknown]
  - Spinal osteoarthritis [Unknown]
